FAERS Safety Report 5341728-9 (Version None)
Quarter: 2007Q2

REPORT INFORMATION
  Report Type: 
  Country: None (occurrence: None)
  Receive Date: 20070601
  Receipt Date: 20070521
  Transmission Date: 20071010
  Serious: Yes (Hospitalization)
  Sender: FDA-Public Use
  Company Number: US-JNJFOC-20070500461

PATIENT
  Sex: Male
  Weight: 114 kg

DRUGS (4)
  1. REMICADE [Suspect]
     Indication: RHEUMATOID ARTHRITIS
     Dosage: 5.3 MG/KG
     Route: 042
  2. PREDNISONE TAB [Concomitant]
     Route: 048
  3. NAPROXEN [Concomitant]
  4. TRAMADOL HCL [Concomitant]

REACTIONS (1)
  - ABSCESS [None]
